FAERS Safety Report 9214826 (Version 5)
Quarter: 2014Q2

REPORT INFORMATION
  Report Type: Spontaneous
  Country: CA (occurrence: CA)
  Receive Date: 20130405
  Receipt Date: 20140630
  Transmission Date: 20141212
  Serious: Yes (Other)
  Sender: FDA-Public Use
  Company Number: CA-GLAXOSMITHKLINE-A0977388A

PATIENT
  Age: 32 Year
  Sex: Female
  Weight: 70 kg

DRUGS (12)
  1. BENLYSTA [Suspect]
     Indication: SYSTEMIC LUPUS ERYTHEMATOSUS
     Dosage: 700MG PER DAY
     Route: 042
     Dates: start: 20120427
  2. PREDNISONE [Concomitant]
     Indication: SYSTEMIC LUPUS ERYTHEMATOSUS
     Dosage: 30MG SEE DOSAGE TEXT
     Route: 048
  3. OXYCONTIN [Concomitant]
     Route: 065
  4. LITHIUM [Concomitant]
     Route: 065
  5. ZOPICLONE [Concomitant]
     Route: 065
  6. FLUOXETINE [Concomitant]
     Route: 065
  7. ABILIFY [Concomitant]
     Route: 065
  8. CELLCEPT [Concomitant]
     Indication: SYSTEMIC LUPUS ERYTHEMATOSUS
     Dosage: 1TAB PER DAY
     Route: 065
  9. HYDROXYCHLOROQUINE [Concomitant]
     Indication: SYSTEMIC LUPUS ERYTHEMATOSUS
     Route: 065
  10. BENADRYL [Concomitant]
     Route: 042
  11. TYLENOL [Concomitant]
     Dosage: 1000MG PER DAY
     Route: 065
  12. PLAQUENIL [Concomitant]
     Indication: SYSTEMIC LUPUS ERYTHEMATOSUS
     Dosage: 1TAB PER DAY
     Route: 048

REACTIONS (27)
  - Body temperature increased [Recovered/Resolved]
  - Nausea [Recovered/Resolved]
  - Vomiting [Recovered/Resolved]
  - Retching [Recovered/Resolved]
  - Urticaria [Recovered/Resolved]
  - Pruritus [Recovered/Resolved]
  - Feeling hot [Recovered/Resolved]
  - Dizziness [Recovered/Resolved]
  - Scratch [Recovering/Resolving]
  - Rash [Unknown]
  - Depressed mood [Unknown]
  - Fatigue [Unknown]
  - Arthralgia [Unknown]
  - Swelling face [Unknown]
  - Lip swelling [Unknown]
  - Eye swelling [Unknown]
  - Abdominal discomfort [Unknown]
  - Pruritus generalised [Unknown]
  - Skin tightness [Recovering/Resolving]
  - Flushing [Recovering/Resolving]
  - Pleurisy [Unknown]
  - Mucosal ulceration [Unknown]
  - Tremor [Unknown]
  - Systemic lupus erythematosus [Not Recovered/Not Resolved]
  - Eye infection [Not Recovered/Not Resolved]
  - Lethargy [Unknown]
  - Asthenia [Unknown]
